FAERS Safety Report 20041496 (Version 2)
Quarter: 2021Q4

REPORT INFORMATION
  Report Type: Report from Study
  Country: US (occurrence: US)
  Receive Date: 20211108
  Receipt Date: 20211116
  Transmission Date: 20220303
  Serious: No
  Sender: FDA-Public Use
  Company Number: US-NOVARTISTESTPH-NVSC2021US254121

PATIENT
  Sex: Female

DRUGS (1)
  1. TASIGNA [Suspect]
     Active Substance: NILOTINIB
     Indication: Abdominal discomfort
     Dosage: UNKNOWN
     Route: 065
     Dates: start: 20211028

REACTIONS (3)
  - Abdominal pain upper [Unknown]
  - Feeding disorder [Unknown]
  - Product use in unapproved indication [Unknown]
